FAERS Safety Report 8013100-4 (Version None)
Quarter: 2011Q4

REPORT INFORMATION
  Report Type: 
  Country: None (occurrence: None)
  Receive Date: 20111229
  Receipt Date: 20111222
  Transmission Date: 20120403
  Serious: Yes (Other)
  Sender: FDA-Public Use
  Company Number: GB-PFIZER INC-2011313612

PATIENT
  Age: 64 Year
  Sex: Female

DRUGS (1)
  1. EFFEXOR [Suspect]
     Dosage: 150+75 UNKNOWN UNIT, TWICE DAILY

REACTIONS (2)
  - NECROTISING FASCIITIS [None]
  - MYOCARDIAL INFARCTION [None]
